FAERS Safety Report 7367810-2 (Version None)
Quarter: 2011Q1

REPORT INFORMATION
  Report Type: 
  Country: None (occurrence: None)
  Receive Date: 20110322
  Receipt Date: 20110222
  Transmission Date: 20110831
  Serious: No
  Sender: FDA-Public Use
  Company Number: US-BAYER-2011-017647

PATIENT
  Sex: Male
  Weight: 73 kg

DRUGS (7)
  1. SIMVASTATIN [Concomitant]
     Dosage: 1 DF, QD
     Route: 048
  2. MULTIVITAMIN [Concomitant]
     Dosage: 1 DF, QD
     Route: 048
  3. MULTI-VITAMIN [Concomitant]
     Dosage: 1 DF, QD
     Route: 048
  4. FISH OIL [Concomitant]
     Dosage: 1 DF, QD
     Route: 048
  5. ANTIALLERGIC AGENTS, EXCL CORTICOSTEROIDS [Concomitant]
     Dosage: 1 DF, QD
     Route: 048
  6. ALEVE (CAPLET) [Suspect]
     Indication: ARTHRITIS
     Dosage: 1 DF, QD
     Route: 048
     Dates: start: 20100101
  7. ASPIRIN [Concomitant]
     Indication: ISCHAEMIC HEART DISEASE PROPHYLAXIS
     Dosage: 1 DF, QD
     Route: 048

REACTIONS (1)
  - DRUG ADMINISTRATION ERROR [None]
